FAERS Safety Report 14302185 (Version 1)
Quarter: 2017Q4

REPORT INFORMATION
  Report Type: Spontaneous
  Country: US (occurrence: US)
  Receive Date: 20171218
  Receipt Date: 20171218
  Transmission Date: 20180321
  Serious: Yes (Hospitalization)
  Sender: FDA-Public Use
  Company Number: None

PATIENT
  Age: 62 Year
  Sex: Male

DRUGS (1)
  1. METHADONE [Suspect]
     Active Substance: METHADONE HYDROCHLORIDE
     Indication: PAIN
     Dates: start: 20171107, end: 20171107

REACTIONS (17)
  - Fall [None]
  - Diarrhoea [None]
  - Mental status changes [None]
  - Feeling abnormal [None]
  - Pain in extremity [None]
  - Condition aggravated [None]
  - Intentional product use issue [None]
  - Speech disorder [None]
  - Back pain [None]
  - Sedation [None]
  - Respiratory acidosis [None]
  - Somnolence [None]
  - Headache [None]
  - Hypophagia [None]
  - Face injury [None]
  - Acute kidney injury [None]
  - Abdominal pain [None]

NARRATIVE: CASE EVENT DATE: 20171107
